FAERS Safety Report 9620395 (Version 1)
Quarter: 2013Q4

REPORT INFORMATION
  Report Type: Spontaneous
  Country: US (occurrence: US)
  Receive Date: 20131015
  Receipt Date: 20131015
  Transmission Date: 20140711
  Serious: No
  Sender: FDA-Public Use
  Company Number: -SAAVPROD-BMS16363954

PATIENT
  Sex: 0

DRUGS (3)
  1. AVALIDE [Suspect]
  2. PRAVACHOL [Suspect]
  3. PLAVIX [Suspect]

REACTIONS (1)
  - Circumstance or information capable of leading to medication error [Unknown]
